FAERS Safety Report 7449905-8 (Version None)
Quarter: 2011Q2

REPORT INFORMATION
  Report Type: 
  Country: None (occurrence: None)
  Receive Date: 20110502
  Receipt Date: 20101116
  Transmission Date: 20111010
  Serious: Yes (Hospitalization)
  Sender: FDA-Public Use
  Company Number: US-BAYER-201038140NA

PATIENT
  Age: 21 Year
  Sex: Female
  Weight: 104.31 kg

DRUGS (12)
  1. DOC-Q-LACE [Concomitant]
     Dosage: 100 MG, UNK
     Route: 048
     Dates: start: 20061202
  2. YASMIN [Suspect]
     Indication: ORAL CONTRACEPTION
     Dosage: UNK
     Dates: start: 20060901, end: 20070301
  3. IBUPROFEN [Concomitant]
     Dosage: 600 MG, UNK
     Dates: start: 20080422
  4. YAZ [Suspect]
     Indication: ORAL CONTRACEPTION
     Dosage: UNK
     Dates: start: 20060901, end: 20070301
  5. DARVOCET [Concomitant]
     Dosage: UNK
     Dates: start: 20061123
  6. ACYCLOVIR [Concomitant]
     Dosage: 800 MG, UNK
     Dates: start: 20090227
  7. PENICILLIN VK [Concomitant]
     Dosage: 500 MG, UNK
     Route: 048
     Dates: start: 20061009, end: 20061015
  8. PROMETHAZINE [Concomitant]
     Dosage: 25 MG, UNK
     Dates: start: 20071005
  9. PROCET [HYDROCODONE,PARACETAMOL] [Concomitant]
     Dosage: TAKE 1-2 TABS
     Route: 048
     Dates: start: 20061202
  10. MOTRIN [Concomitant]
     Dosage: 600 MG, UNK
     Route: 048
     Dates: start: 20061107
  11. PROCET [HYDROCODONE,PARACETAMOL] [Concomitant]
     Dosage: TAKE 1-2 TABS
     Route: 048
     Dates: start: 20061107
  12. METOCLOPRAMIDE [Concomitant]

REACTIONS (3)
  - INJURY [None]
  - GALLBLADDER DISORDER [None]
  - CHOLECYSTITIS [None]
